FAERS Safety Report 6740026-6 (Version None)
Quarter: 2010Q2

REPORT INFORMATION
  Report Type: 
  Country: None (occurrence: None)
  Receive Date: 20100525
  Receipt Date: 20100522
  Transmission Date: 20101027
  Serious: Yes (Death)
  Sender: FDA-Public Use
  Company Number: PHHO2007MX14649

PATIENT
  Sex: Female

DRUGS (2)
  1. ZOMETA [Suspect]
     Indication: BONE DISORDER
     Dosage: 4 MG/5 ML
     Route: 042
     Dates: start: 20070601
  2. FEMARA [Suspect]
     Indication: NEOPLASM MALIGNANT
     Dosage: 1 TABLET (2.5 MG) PER DAY
     Route: 048

REACTIONS (5)
  - BREAST CANCER [None]
  - CARDIAC FAILURE [None]
  - GASTROINTESTINAL HAEMORRHAGE [None]
  - PNEUMONIA [None]
  - RESPIRATORY FAILURE [None]
